FAERS Safety Report 8048812-X (Version None)
Quarter: 2012Q1

REPORT INFORMATION
  Report Type: 
  Country: None (occurrence: None)
  Receive Date: 20120117
  Receipt Date: 20120109
  Transmission Date: 20120608
  Serious: Yes (Hospitalization)
  Sender: FDA-Public Use
  Company Number: US-AMGEN-USASP2012001333

PATIENT
  Age: 39 Year
  Sex: Female

DRUGS (1)
  1. ENBREL [Suspect]
     Indication: RHEUMATOID ARTHRITIS
     Dosage: 25 MG, 2 TIMES/WK
     Dates: start: 20000301

REACTIONS (4)
  - C-REACTIVE PROTEIN INCREASED [None]
  - FOOT DEFORMITY [None]
  - RHEUMATOID ARTHRITIS [None]
  - BREAST CANCER FEMALE [None]
